FAERS Safety Report 13702263 (Version 1)
Quarter: 2017Q2

REPORT INFORMATION
  Report Type: Report from Study
  Country: None (occurrence: US)
  Receive Date: 20170629
  Receipt Date: 20170629
  Transmission Date: 20170830
  Serious: No
  Sender: FDA-Public Use
  Company Number: US-IPSEN BIOPHARMACEUTICALS, INC.-2015-5238

PATIENT
  Sex: Male
  Weight: 37 kg

DRUGS (2)
  1. INCRELEX [Suspect]
     Active Substance: MECASERMIN
     Indication: PRIMARY INSULIN LIKE GROWTH FACTOR-1 DEFICIENCY
     Dosage: 237.8 MCG/KG
     Route: 058
     Dates: start: 20141206, end: 201505
  2. INCRELEX [Suspect]
     Active Substance: MECASERMIN
     Dosage: 256.7 MCG/KG
     Route: 058
     Dates: start: 201505

REACTIONS (5)
  - Fatigue [None]
  - Fatigue [None]
  - Dizziness [None]
  - Dizziness [None]
  - Overdose [Unknown]

NARRATIVE: CASE EVENT DATE: 2015
